FAERS Safety Report 8091491-6 (Version None)
Quarter: 2012Q1

REPORT INFORMATION
  Report Type: 
  Country: None (occurrence: None)
  Receive Date: 20120129
  Receipt Date: 20111108
  Transmission Date: 20120608
  Serious: No
  Sender: FDA-Public Use
  Company Number: US-ABBOTT-11P-163-0871524-00

PATIENT
  Age: 28 Year
  Sex: Female

DRUGS (2)
  1. HUMIRA [Suspect]
     Indication: RHEUMATOID ARTHRITIS
     Dates: start: 20080101, end: 20091101
  2. HUMIRA [Suspect]
     Dates: start: 20100101

REACTIONS (4)
  - ARTHRITIS [None]
  - HEADACHE [None]
  - DIZZINESS [None]
  - EAR DISCOMFORT [None]
